FAERS Safety Report 17646269 (Version 1)
Quarter: 2020Q2

REPORT INFORMATION
  Report Type: Spontaneous
  Country: US (occurrence: US)
  Receive Date: 20200408
  Receipt Date: 20200408
  Transmission Date: 20200713
  Serious: Yes (Life-Threatening, Hospitalization)
  Sender: FDA-Public Use
  Company Number: US-MYLANLABS-2020M1035281

PATIENT
  Age: 34 Year
  Sex: Female

DRUGS (3)
  1. DILTIAZEM. [Suspect]
     Active Substance: DILTIAZEM
     Indication: TACHYCARDIA
     Route: 042
  2. METOPROLOL. [Suspect]
     Active Substance: METOPROLOL
     Indication: TACHYCARDIA
     Route: 042
  3. ADENOSINE. [Suspect]
     Active Substance: ADENOSINE
     Indication: TACHYCARDIA
     Route: 042

REACTIONS (1)
  - Drug ineffective [Unknown]
